FAERS Safety Report 21908821 (Version 1)
Quarter: 2023Q1

REPORT INFORMATION
  Report Type: Spontaneous
  Country: US (occurrence: None)
  Receive Date: 20230124
  Receipt Date: 20230124
  Transmission Date: 20230418
  Serious: Yes (Other)
  Sender: FDA-Public Use
  Company Number: None

PATIENT
  Age: 57 Year
  Sex: Female
  Weight: 55 kg

DRUGS (1)
  1. VELPHORO [Suspect]
     Active Substance: SUCROFERRIC OXYHYDROXIDE
     Indication: Hyperparathyroidism secondary
     Dosage: FREQUENCY : DAILY;?
     Route: 048
     Dates: start: 20230102, end: 20230102

REACTIONS (2)
  - Rash [None]
  - Swelling face [None]

NARRATIVE: CASE EVENT DATE: 20230102
